FAERS Safety Report 12625524 (Version 1)
Quarter: 2016Q3

REPORT INFORMATION
  Report Type: Spontaneous
  Country: CH (occurrence: CH)
  Receive Date: 20160805
  Receipt Date: 20160805
  Transmission Date: 20161109
  Serious: Yes (Other)
  Sender: FDA-Public Use
  Company Number: CH-TEVA-681462ISR

PATIENT
  Age: 69 Year
  Sex: Male

DRUGS (1)
  1. COTRIMOXAZOLE [Suspect]
     Active Substance: SULFAMETHOXAZOLE\TRIMETHOPRIM
     Indication: STAPHYLOCOCCAL INFECTION
     Dosage: (14.5 TRIMETHOPRIM/70 SULFAMETHOXAZOLE) MG/KG/DAY
     Route: 065

REACTIONS (1)
  - Encephalopathy [Recovering/Resolving]
